FAERS Safety Report 8982012 (Version 1)
Quarter: 2012Q4

REPORT INFORMATION
  Report Type: 
  Country: US (occurrence: US)
  Receive Date: 20121212
  Receipt Date: 20121212
  Transmission Date: 20130627
  Serious: Yes (Death)
  Sender: FDA-Public Use
  Company Number: US-ASTELLAS-1093569

PATIENT
  Sex: Female

DRUGS (2)
  1. TARCEVA [Suspect]
     Indication: NON-SMALL CELL LUNG CANCER
     Dosage: taken for 3 months
     Route: 065
  2. AVASTIN [Suspect]
     Indication: NON-SMALL CELL LUNG CANCER
     Dosage: 26/Jun/2006, 17/Jul/2006, 07/Aug/2006
     Route: 065
     Dates: start: 20060605

REACTIONS (2)
  - Death [Fatal]
  - Dyspnoea exertional [Unknown]
